FAERS Safety Report 8343540-5 (Version None)
Quarter: 2012Q2

REPORT INFORMATION
  Report Type: 
  Country: None (occurrence: None)
  Receive Date: 20120508
  Receipt Date: 20120507
  Transmission Date: 20120825
  Serious: Yes (Hospitalization)
  Sender: FDA-Public Use
  Company Number: ES-PFIZER INC-2012110597

PATIENT
  Age: 88 Year
  Sex: Female

DRUGS (6)
  1. ALDACTONE [Suspect]
     Indication: CARDIAC FAILURE CONGESTIVE
     Dosage: 25 MG, 1X/DAY
     Route: 048
     Dates: start: 20120326, end: 20120408
  2. IBUPROFEN [Interacting]
     Dosage: 600 MG, 3X/DAY
     Route: 048
     Dates: start: 20120403, end: 20120408
  3. LORAZEPAM [Concomitant]
     Indication: DEPRESSION
     Dosage: 1 MG, 1X/DAY
     Route: 048
  4. PANTOPRAZOLE [Concomitant]
     Indication: PROPHYLAXIS
     Dosage: 40 MG, 2X/DAY
     Route: 048
  5. CARVEDILOL [Concomitant]
     Indication: HYPERTENSION
     Dosage: 18.75 MG, 2X/DAY
     Route: 048
  6. FUROSEMIDE [Interacting]
     Indication: CARDIAC FAILURE CONGESTIVE
     Dosage: 60 MG, 1X/DAY
     Route: 048
     Dates: start: 20120326, end: 20120408

REACTIONS (3)
  - RENAL FAILURE ACUTE [None]
  - HYPERKALAEMIA [None]
  - DRUG INTERACTION [None]
